FAERS Safety Report 7926934-9 (Version None)
Quarter: 2011Q4

REPORT INFORMATION
  Report Type: 
  Country: None (occurrence: None)
  Receive Date: 20111118
  Receipt Date: 20111031
  Transmission Date: 20120403
  Serious: Yes (Life-Threatening, Other)
  Sender: FDA-Public Use
  Company Number: US-ASTRAZENECA-2011SE55202

PATIENT
  Age: 33 Year
  Sex: Female

DRUGS (9)
  1. SYMBICORT [Suspect]
     Indication: ASTHMA
     Route: 055
  2. CETIRIZINE HYDROCHLORIDE [Concomitant]
  3. LINSEED [Concomitant]
  4. LORATADINE [Concomitant]
  5. ORAL CONTRACEPTIVE [Concomitant]
  6. ADVAIR DISKUS 100/50 [Suspect]
     Indication: ASTHMA
     Dosage: 250/50 MCG INHALED AT 1 PUFF TWICE PER DAY
     Route: 055
  7. RANITIDINE HYDROCHLORIDE [Concomitant]
  8. PSEUDOEPHEDRINE HCL [Concomitant]
  9. GUAIFENESIN [Concomitant]

REACTIONS (5)
  - CHEST DISCOMFORT [None]
  - ANAPHYLACTIC REACTION [None]
  - CIRCULATORY COLLAPSE [None]
  - PRESYNCOPE [None]
  - HYPOTENSION [None]
